FAERS Safety Report 13628468 (Version 1)
Quarter: 2017Q2

REPORT INFORMATION
  Report Type: Other
  Country: None (occurrence: US)
  Receive Date: 20170607
  Receipt Date: 20170607
  Transmission Date: 20170830
  Serious: Yes (Other)
  Sender: FDA-Public Use
  Company Number: US-GUTHY-RENKER LLC-2021634

PATIENT
  Age: 49 Year
  Sex: Female

DRUGS (2)
  1. IT COSMETICS BYE BYE FOUNDATION WITH SPF 50+ [Suspect]
     Active Substance: TITANIUM DIOXIDE\ZINC OXIDE
     Indication: PROPHYLAXIS AGAINST SOLAR RADIATION
     Route: 061
     Dates: start: 20170413
  2. TYLENOL PRN [Concomitant]

REACTIONS (6)
  - Blister [Recovering/Resolving]
  - Burning sensation [None]
  - Swelling face [None]
  - Skin discolouration [None]
  - Rash erythematous [None]
  - Pruritus [None]

NARRATIVE: CASE EVENT DATE: 20170414
